FAERS Safety Report 7808790-2 (Version None)
Quarter: 2011Q4

REPORT INFORMATION
  Report Type: 
  Country: None (occurrence: None)
  Receive Date: 20111012
  Receipt Date: 20110927
  Transmission Date: 20120403
  Serious: Yes (Other)
  Sender: FDA-Public Use
  Company Number: PHHY2011BR86483

PATIENT
  Sex: Female

DRUGS (3)
  1. BROMAZEPAM [Concomitant]
     Indication: INSOMNIA
     Dosage: 6 MG, (1 TABLET) WHEN SHE NEEDS
     Route: 048
  2. ATENOLOL [Suspect]
     Indication: HYPERTENSION
     Dosage: 25 MG, DAILY
     Route: 048
     Dates: start: 20090101
  3. EXFORGE [Suspect]
     Indication: HYPERTENSION
     Dosage: 1 DF, (320/5MG) DAILY
     Route: 048
     Dates: start: 20090101

REACTIONS (2)
  - BONE FISSURE [None]
  - FALL [None]
